FAERS Safety Report 5097994-0 (Version None)
Quarter: 2006Q3

REPORT INFORMATION
  Report Type: 
  Country: None (occurrence: None)
  Receive Date: 20060905
  Receipt Date: 20060824
  Transmission Date: 20061208
  Serious: Yes (Death, Hospitalization)
  Sender: FDA-Public Use
  Company Number: AZAUK200600229

PATIENT
  Age: 52 Year
  Sex: Male
  Weight: 83.1 kg

DRUGS (8)
  1. AZACITIZIDINE (AZACITIDINE) (INJECTION) [Suspect]
     Indication: ACUTE MYELOID LEUKAEMIA
     Dosage: 75 MG/M2, SUBCUTANEOUS
     Route: 058
     Dates: start: 20060614, end: 20060620
  2. OMEPRAZOLE [Concomitant]
  3. ACETAMINOPHEN [Concomitant]
  4. ALLOPURINOL [Concomitant]
  5. DOMPERIDONE (DOMPERIDONE) [Concomitant]
  6. ACYCLOVIR [Concomitant]
  7. FLOXACILLIN SODIUM [Concomitant]
  8. BACTROBAN (MUPIROCIN) (OINTMENT) [Concomitant]

REACTIONS (4)
  - BLAST CELL COUNT INCREASED [None]
  - DISEASE PROGRESSION [None]
  - NEUTROPENIC SEPSIS [None]
  - WHITE BLOOD CELL COUNT INCREASED [None]
